FAERS Safety Report 5188800-4 (Version None)
Quarter: 2006Q4

REPORT INFORMATION
  Report Type: 
  Country: None (occurrence: None)
  Receive Date: 20061215
  Receipt Date: 20061205
  Transmission Date: 20070319
  Serious: Yes (Death)
  Sender: FDA-Public Use
  Company Number: 2006AL003795

PATIENT
  Age: 61 Year
  Sex: Female

DRUGS (3)
  1. CARBAMAZEPINE [Suspect]
     Indication: NEURALGIA
     Dosage: 1200 MG; QD ;PO
     Route: 048
  2. METHADONE HCL [Concomitant]
  3. GABAPENTIN [Concomitant]

REACTIONS (4)
  - BONE PAIN [None]
  - LOSS OF CONSCIOUSNESS [None]
  - RESPIRATORY DEPRESSION [None]
  - RESPIRATORY FAILURE [None]
